FAERS Safety Report 13628076 (Version 1)
Quarter: 2017Q2

REPORT INFORMATION
  Report Type: Spontaneous
  Country: US (occurrence: US)
  Receive Date: 20170608
  Receipt Date: 20170608
  Transmission Date: 20170830
  Serious: No
  Sender: FDA-Public Use
  Company Number: US-PERRIGO-17US000568

PATIENT
  Age: 78 Year
  Sex: Female
  Weight: 74.83 kg

DRUGS (3)
  1. LISINOPRIL. [Concomitant]
     Active Substance: LISINOPRIL
     Indication: HYPERTENSION
     Dosage: UNK
     Route: 065
  2. MINOXIDIL. [Suspect]
     Active Substance: MINOXIDIL
     Indication: ALOPECIA
     Dosage: 1/2 CAPFUL, QD
     Route: 061
     Dates: start: 20170101, end: 20170108
  3. SIMVASTATIN. [Concomitant]
     Active Substance: SIMVASTATIN
     Indication: BLOOD CHOLESTEROL INCREASED
     Dosage: UNK
     Route: 065

REACTIONS (5)
  - Headache [Recovered/Resolved]
  - Hair texture abnormal [Recovered/Resolved]
  - Application site discomfort [Recovered/Resolved]
  - Off label use [Recovered/Resolved]
  - Application site pain [Recovered/Resolved]

NARRATIVE: CASE EVENT DATE: 20170101
